FAERS Safety Report 5278833-1 (Version None)
Quarter: 2007Q1

REPORT INFORMATION
  Report Type: 
  Country: None (occurrence: None)
  Receive Date: 20070328
  Receipt Date: 20070316
  Transmission Date: 20070707
  Serious: Yes (Life-Threatening, Hospitalization, Other)
  Sender: FDA-Public Use
  Company Number: GB-BAYER-200710334BNE

PATIENT
  Age: 72 Year
  Sex: Male

DRUGS (10)
  1. CIPROFLOXACIN HYDROCHLORIDE [Suspect]
     Dosage: TOTAL DAILY DOSE: 1000 MG
     Route: 042
     Dates: start: 20070224, end: 20070227
  2. ASPIRIN [Concomitant]
     Route: 048
  3. DIGOXIN [Concomitant]
     Route: 048
  4. FRUSEMIDE [Concomitant]
     Route: 048
     Dates: start: 20070224
  5. ISOSORBIDE MONONITRATE [Concomitant]
     Dosage: TOTAL DAILY DOSE: 20 MG
     Route: 048
     Dates: end: 20070226
  6. OMEPRAZOLE [Concomitant]
     Route: 048
  7. ORAMORPH SR [Concomitant]
     Route: 048
     Dates: start: 20070225
  8. ACETAMINOPHEN [Concomitant]
     Dosage: TOTAL DAILY DOSE: 4 G
     Route: 048
     Dates: start: 20070224, end: 20070227
  9. SENNA [Concomitant]
     Route: 048
  10. TRAMADOL HCL [Concomitant]
     Dosage: TOTAL DAILY DOSE: 400 MG
     Route: 048
     Dates: start: 20070224, end: 20070301

REACTIONS (1)
  - LIVER FUNCTION TEST ABNORMAL [None]
